FAERS Safety Report 6507820-8 (Version None)
Quarter: 2009Q4

REPORT INFORMATION
  Report Type: 
  Country: None (occurrence: None)
  Receive Date: 20091221
  Receipt Date: 20091216
  Transmission Date: 20100525
  Serious: Yes (Other)
  Sender: FDA-Public Use
  Company Number: A0785307A

PATIENT
  Age: 56 Year
  Sex: Female
  Weight: 134.1 kg

DRUGS (2)
  1. AVANDIA [Suspect]
     Route: 048
     Dates: start: 20000114, end: 20000505
  2. LISINOPRIL [Concomitant]
     Route: 048

REACTIONS (5)
  - CARDIAC FAILURE CONGESTIVE [None]
  - NEUROPATHY PERIPHERAL [None]
  - RENAL FAILURE [None]
  - UNEVALUABLE EVENT [None]
  - WEIGHT INCREASED [None]
